FAERS Safety Report 9931426 (Version 4)
Quarter: 2014Q2

REPORT INFORMATION
  Report Type: Spontaneous
  Country: JP (occurrence: JP)
  Receive Date: 20140228
  Receipt Date: 20140402
  Transmission Date: 20141212
  Serious: Yes (Hospitalization)
  Sender: FDA-Public Use
  Company Number: JP-BRISTOL-MYERS SQUIBB COMPANY-20337994

PATIENT
  Age: 75 Year
  Sex: Male
  Weight: 40 kg

DRUGS (4)
  1. ELIQUIS [Suspect]
     Dosage: 2.5MG,2/DAY
     Route: 048
     Dates: start: 20140203, end: 20140212
  2. PRONON [Suspect]
     Indication: ARRHYTHMIA
     Dosage: TABLET?150MG
     Route: 048
     Dates: start: 20140203, end: 20140212
  3. PRONON [Suspect]
     Indication: ATRIAL FIBRILLATION
     Dosage: TABLET?150MG
     Route: 048
     Dates: start: 20140203, end: 20140212
  4. MAINTATE [Suspect]
     Indication: ATRIAL FIBRILLATION
     Dosage: TABLET?.625MG,2/DAY
     Route: 048
     Dates: start: 20140203, end: 20140212

REACTIONS (1)
  - Liver disorder [Recovered/Resolved]
